FAERS Safety Report 15622425 (Version 2)
Quarter: 2018Q4

REPORT INFORMATION
  Report Type: Spontaneous
  Country: US (occurrence: US)
  Receive Date: 20181115
  Receipt Date: 20181226
  Transmission Date: 20190205
  Serious: No
  Sender: FDA-Public Use
  Company Number: US-PFIZER INC-2018456901

PATIENT
  Age: 45 Year
  Sex: Male

DRUGS (3)
  1. SUTENT [Suspect]
     Active Substance: SUNITINIB MALATE
     Indication: RENAL CANCER STAGE III
  2. SUTENT [Suspect]
     Active Substance: SUNITINIB MALATE
     Indication: URETERAL DISORDER
  3. SUTENT [Suspect]
     Active Substance: SUNITINIB MALATE
     Indication: RENAL DISORDER
     Dosage: 50 MG, CYCLIC (1 CAPSULE BY MOUTH DAILY FOR 2 WEEKS, THEN OFF FOR 1 WEEK, AND REPEAT)
     Route: 048
     Dates: start: 201810

REACTIONS (6)
  - Back pain [Not Recovered/Not Resolved]
  - Hypertension [Unknown]
  - Diarrhoea [Not Recovered/Not Resolved]
  - Palmar-plantar erythrodysaesthesia syndrome [Not Recovered/Not Resolved]
  - Fatigue [Not Recovered/Not Resolved]
  - Ageusia [Not Recovered/Not Resolved]
